FAERS Safety Report 6968838-4 (Version None)
Quarter: 2010Q3

REPORT INFORMATION
  Report Type: 
  Country: None (occurrence: None)
  Receive Date: 20100907
  Receipt Date: 20100825
  Transmission Date: 20110219
  Serious: Yes (Hospitalization)
  Sender: FDA-Public Use
  Company Number: CA-SANOFI-AVENTIS-2010SA021471

PATIENT
  Age: 63 Year
  Sex: Male
  Weight: 77.3 kg

DRUGS (6)
  1. BLINDED THERAPY [Suspect]
     Route: 048
     Dates: start: 20100311, end: 20100315
  2. DRONEDARONE HCL [Suspect]
     Route: 048
     Dates: start: 20100316, end: 20100330
  3. WARFARIN SODIUM [Concomitant]
     Dates: start: 20091126
  4. PANTOPRAZOLE [Concomitant]
     Route: 048
     Dates: start: 20100215
  5. SYNTHROID [Concomitant]
     Dates: start: 20100215
  6. TIMOLOL [Concomitant]
     Route: 048
     Dates: start: 20100215

REACTIONS (1)
  - ATRIAL THROMBOSIS [None]
